FAERS Safety Report 8911062 (Version 1)
Quarter: 2012Q4

REPORT INFORMATION
  Report Type: 
  Country: US (occurrence: US)
  Receive Date: 20121116
  Receipt Date: 20121116
  Transmission Date: 20130627
  Serious: No
  Sender: FDA-Public Use
  Company Number: US-JNJFOC-20121102267

PATIENT
  Sex: Male
  Weight: 63.5 kg

DRUGS (3)
  1. SANDOZ FENTANYL TRANSDERMAL SYSTEM [Suspect]
     Indication: ARTHRITIS
     Route: 062
  2. SANDOZ FENTANYL TRANSDERMAL SYSTEM [Suspect]
     Indication: BACK DISORDER
     Route: 062
  3. TERAZOSIN [Concomitant]
     Indication: PROSTATIC DISORDER
     Route: 048

REACTIONS (4)
  - Poor quality drug administered [Recovered/Resolved]
  - Therapeutic response delayed [Not Recovered/Not Resolved]
  - Product quality issue [Unknown]
  - Product outer packaging issue [Unknown]
